FAERS Safety Report 4363812-9 (Version None)
Quarter: 2004Q2

REPORT INFORMATION
  Report Type: 
  Country: None (occurrence: None)
  Receive Date: 20040521
  Receipt Date: 20040503
  Transmission Date: 20050107
  Serious: Yes (Hospitalization)
  Sender: FDA-Public Use
  Company Number: 2004-01798

PATIENT
  Age: 87 Year
  Sex: Male

DRUGS (4)
  1. THERACYS [Suspect]
     Indication: BLADDER CANCER
     Dates: start: 20040430
  2. GLUCOPHAGE [Concomitant]
  3. CARDURA [Concomitant]
  4. LOTENSIN [Concomitant]

REACTIONS (2)
  - HAEMORRHAGE [None]
  - PYREXIA [None]
